FAERS Safety Report 15292280 (Version 2)
Quarter: 2022Q1

REPORT INFORMATION
  Report Type: Spontaneous
  Country: ES (occurrence: ES)
  Receive Date: 20180818
  Receipt Date: 20220314
  Transmission Date: 20220424
  Serious: Yes (Hospitalization, Other)
  Sender: FDA-Public Use
  Company Number: ES-AUROBINDO-AUR-APL-2018-041762

PATIENT
  Age: 69 Year
  Sex: Male
  Weight: 77 kg

DRUGS (3)
  1. AMLODIPINE [Suspect]
     Active Substance: AMLODIPINE BESYLATE
     Indication: Hypertension
     Dosage: 10 MILLIGRAM, ONCE A DAY (1 VEZ AL D?A)
     Route: 048
     Dates: start: 20140310, end: 20140509
  2. ALLOPURINOL [Suspect]
     Active Substance: ALLOPURINOL
     Indication: Hyperuricaemia
     Dosage: 100 MILLIGRAM, ONCE A DAY (1 VEZ AL D?A)
     Route: 048
     Dates: start: 20140320, end: 20140509
  3. PREDNISONE [Concomitant]
     Active Substance: PREDNISONE
     Indication: Product used for unknown indication
     Dosage: 80 MILLIGRAM, ONCE A DAY (1 VEZ AL D?A)
     Route: 048
     Dates: start: 20140311, end: 20140509

REACTIONS (1)
  - Drug reaction with eosinophilia and systemic symptoms [Recovered/Resolved]

NARRATIVE: CASE EVENT DATE: 20140506
